FAERS Safety Report 9255102 (Version 2)
Quarter: 2013Q2

REPORT INFORMATION
  Report Type: Spontaneous
  Country: DE (occurrence: DE)
  Receive Date: 20130425
  Receipt Date: 20130508
  Transmission Date: 20140414
  Serious: Yes (Other)
  Sender: FDA-Public Use
  Company Number: DE-JNJFOC-20130412049

PATIENT
  Sex: Male

DRUGS (2)
  1. REGAINE MAENNER SCHAUM [Suspect]
     Route: 061
  2. REGAINE MAENNER SCHAUM [Suspect]
     Indication: ALOPECIA
     Route: 061

REACTIONS (3)
  - Dyspnoea [Recovered/Resolved]
  - Chest pain [Recovered/Resolved]
  - Headache [Recovered/Resolved]
